FAERS Safety Report 7752217-6 (Version None)
Quarter: 2011Q3

REPORT INFORMATION
  Report Type: 
  Country: None (occurrence: None)
  Receive Date: 20110915
  Receipt Date: 20110112
  Transmission Date: 20111222
  Serious: Yes (Other)
  Sender: FDA-Public Use
  Company Number: US-BAYER-200920330NA

PATIENT
  Age: 23 Year
  Sex: Female

DRUGS (2)
  1. BLOOD PRESSURE MEDICATION (NOS) [Concomitant]
  2. MIRENA [Suspect]
     Indication: CONTRACEPTION
     Dosage: 20 ?G (DAILY DOSE), , INTRA-UTERINE
     Route: 015
     Dates: start: 20060824

REACTIONS (14)
  - SEXUALLY TRANSMITTED DISEASE [None]
  - ABDOMINAL PAIN [None]
  - FUNGAL INFECTION [None]
  - PELVIC INFECTION [None]
  - DEVICE DISLOCATION [None]
  - AMENORRHOEA [None]
  - ECTOPIC PREGNANCY [None]
  - BLOOD PRESSURE INCREASED [None]
  - POLYMENORRHOEA [None]
  - ABDOMINAL PAIN UPPER [None]
  - MENSTRUATION DELAYED [None]
  - COMPLICATION OF DEVICE REMOVAL [None]
  - CONSTIPATION [None]
  - MIGRAINE [None]
